FAERS Safety Report 15709694 (Version 1)
Quarter: 2018Q4

REPORT INFORMATION
  Report Type: Spontaneous
  Country: PR (occurrence: PR)
  Receive Date: 20181211
  Receipt Date: 20181211
  Transmission Date: 20190205
  Serious: No
  Sender: FDA-Public Use
  Company Number: PR-PFIZER INC-2018508754

PATIENT
  Age: 68 Year
  Sex: Male
  Weight: 45.35 kg

DRUGS (1)
  1. INLYTA [Suspect]
     Active Substance: AXITINIB
     Indication: RENAL CANCER
     Dosage: 5 MG, 2X/DAY
     Route: 048
     Dates: start: 20181121

REACTIONS (4)
  - Haemoglobin decreased [Unknown]
  - Constipation [Unknown]
  - Dizziness [Unknown]
  - Drug hypersensitivity [Unknown]
